FAERS Safety Report 5604989-4 (Version None)
Quarter: 2008Q1

REPORT INFORMATION
  Report Type: 
  Country: None (occurrence: None)
  Receive Date: 20080128
  Receipt Date: 20080124
  Transmission Date: 20080703
  Serious: Yes (Death)
  Sender: FDA-Public Use
  Company Number: MW-BOEHRINGER INGELHEIM PHARMACEUTICALS, INC.-2008-BP-01178BP

PATIENT
  Age: 38 Year
  Sex: Female
  Weight: 63 kg

DRUGS (7)
  1. VIRAMUNE [Suspect]
     Indication: HIV INFECTION
     Route: 048
     Dates: start: 20060926, end: 20080122
  2. COMBIVIR [Suspect]
     Indication: HIV INFECTION
     Dosage: 300/600 MG
     Route: 048
     Dates: start: 20060913, end: 20080122
  3. EFAVIRENZ [Suspect]
     Indication: HIV INFECTION
     Route: 048
     Dates: start: 20060913, end: 20060925
  4. RIFINAH [Concomitant]
  5. CIPROFLOXACIN [Concomitant]
     Dates: start: 20080117, end: 20080121
  6. AMOXICILLIN [Concomitant]
     Dates: start: 20080117, end: 20080121
  7. BRUFEN [Concomitant]
     Dates: start: 20080117, end: 20080121

REACTIONS (1)
  - PANCREATITIS ACUTE [None]
